FAERS Safety Report 4788257-9 (Version None)
Quarter: 2005Q4

REPORT INFORMATION
  Report Type: 
  Country: None (occurrence: None)
  Receive Date: 20051003
  Receipt Date: 20050907
  Transmission Date: 20060501
  Serious: Yes (Hospitalization)
  Sender: FDA-Public Use
  Company Number: ENT 2005-0134

PATIENT
  Age: 86 Year
  Sex: Male

DRUGS (9)
  1. COMTESS (ENTACAPONE) [Suspect]
     Dosage: ORAL
     Route: 048
  2. TRIHEXYPHENIDYL HCL [Concomitant]
  3. SENNA [Concomitant]
  4. TEMAZEPAM [Concomitant]
  5. LANSOPRAZOLE [Concomitant]
  6. ASPIRIN [Concomitant]
  7. ACETAMINOPHEN [Concomitant]
  8. HYDROXYZINE [Concomitant]
  9. CO-CARELDOPA [Concomitant]

REACTIONS (5)
  - BRADYCARDIA [None]
  - CYANOSIS [None]
  - DRUG INTERACTION [None]
  - MALAISE [None]
  - URINARY RETENTION [None]
